FAERS Safety Report 9272983 (Version 1)
Quarter: 2013Q2

REPORT INFORMATION
  Report Type: Spontaneous
  Country: US (occurrence: US)
  Receive Date: 20130506
  Receipt Date: 20130506
  Transmission Date: 20140414
  Serious: Yes (Other)
  Sender: FDA-Public Use
  Company Number: US-ASTRAZENECA-2013SE30103

PATIENT
  Age: 61 Year
  Sex: Male
  Weight: 88.5 kg

DRUGS (8)
  1. LISINOPRIL [Suspect]
     Indication: HYPERTENSION
     Route: 048
     Dates: start: 2008
  2. SYMBICORT [Suspect]
     Indication: LUNG NEOPLASM MALIGNANT
     Dosage: 160/4.5 MCG, 2 PUFFS, BID
     Route: 055
     Dates: start: 201107
  3. SYMBICORT [Suspect]
     Indication: LUNG NEOPLASM MALIGNANT
     Dosage: 1 PUFFS, DAILY
     Route: 055
     Dates: start: 20130415
  4. GABAPENTIN [Concomitant]
     Indication: NEUROPATHY PERIPHERAL
     Route: 048
     Dates: start: 2008
  5. CITALOPRAM [Concomitant]
     Indication: DEPRESSION
     Route: 048
     Dates: start: 2008
  6. FOLIC ACID [Concomitant]
     Indication: CHEMOTHERAPY
     Route: 048
  7. VENTOLIN [Concomitant]
     Indication: LUNG NEOPLASM MALIGNANT
     Dosage: 2 PUFFS QID
     Route: 055
     Dates: start: 201107
  8. CHEMOTHERAPY [Concomitant]

REACTIONS (10)
  - Lung neoplasm malignant [Unknown]
  - Joint swelling [Unknown]
  - Local swelling [Unknown]
  - Fall [Unknown]
  - Musculoskeletal discomfort [Unknown]
  - Muscle spasms [Unknown]
  - Visual impairment [Unknown]
  - Muscle spasms [Unknown]
  - Off label use [Unknown]
  - Off label use [Unknown]
